FAERS Safety Report 11241784 (Version 1)
Quarter: 2015Q3

REPORT INFORMATION
  Report Type: Spontaneous
  Country: US (occurrence: US)
  Receive Date: 20150706
  Receipt Date: 20150706
  Transmission Date: 20151125
  Serious: Yes (Hospitalization, Other)
  Sender: FDA-Public Use
  Company Number: PHHY2015US070353

PATIENT
  Age: 64 Year
  Sex: Female

DRUGS (23)
  1. VOLTAREN [Suspect]
     Active Substance: DICLOFENAC SODIUM
     Indication: PRODUCT USED FOR UNKNOWN INDICATION
     Dosage: 2 G, QD (AS NEEDED)
     Route: 061
  2. GENTAMICIN. [Suspect]
     Active Substance: GENTAMICIN
     Dosage: (30 -15 MG) (POWDER)
     Route: 065
  3. FISH OIL [Suspect]
     Active Substance: FISH OIL
     Indication: PRODUCT USED FOR UNKNOWN INDICATION
     Dosage: 1 DF, QD
     Route: 048
  4. LIORESAL [Suspect]
     Active Substance: BACLOFEN
     Indication: PRODUCT USED FOR UNKNOWN INDICATION
     Dosage: 10 MG, QID (FOUR TIMES DAILY)
     Route: 048
  5. LEXAPRO [Suspect]
     Active Substance: ESCITALOPRAM OXALATE
     Indication: PRODUCT USED FOR UNKNOWN INDICATION
     Dosage: 20 MG, QD
     Route: 048
  6. WELLBUTRIN SR [Suspect]
     Active Substance: BUPROPION HYDROCHLORIDE
     Indication: PRODUCT USED FOR UNKNOWN INDICATION
     Dosage: 150 MG, BID
     Route: 048
  7. SYNTHROID [Suspect]
     Active Substance: LEVOTHYROXINE SODIUM
     Indication: PRODUCT USED FOR UNKNOWN INDICATION
     Dosage: 100 UG, QD
     Route: 048
  8. MAALOX /00416501/ [Suspect]
     Active Substance: ALUMINUM HYDROXIDE\DIMETHICONE\MAGNESIUM HYDROXIDE
     Indication: PRODUCT USED FOR UNKNOWN INDICATION
     Dosage: UNK, QID
     Route: 048
  9. CRANBERRY BERCO [Suspect]
     Active Substance: CRANBERRY
     Indication: PRODUCT USED FOR UNKNOWN INDICATION
     Dosage: 125 MG, QD
     Route: 048
  10. LIORESAL [Suspect]
     Active Substance: BACLOFEN
     Dosage: 479.4 UG, QD (23 PERCENT  DECREASE)
     Route: 037
  11. VITAMIN D [Suspect]
     Active Substance: CHOLECALCIFEROL
     Indication: PRODUCT USED FOR UNKNOWN INDICATION
     Dosage: 1200 OT, QD
     Route: 048
  12. LOMOTIL [Suspect]
     Active Substance: ATROPINE SULFATE\DIPHENOXYLATE HYDROCHLORIDE
     Indication: PRODUCT USED FOR UNKNOWN INDICATION
     Dosage: 1 DF, QID
     Route: 048
  13. SILICA [Suspect]
     Active Substance: SILICON DIOXIDE
     Indication: PRODUCT USED FOR UNKNOWN INDICATION
     Route: 048
  14. TRIVITAMIN [Suspect]
     Active Substance: ASCORBIC ACID\ERGOCALCIFEROL\RETINOL
     Indication: PRODUCT USED FOR UNKNOWN INDICATION
     Dosage: UNK UNK, QD
     Route: 048
  15. GENTAMICIN. [Suspect]
     Active Substance: GENTAMICIN
     Indication: PRODUCT USED FOR UNKNOWN INDICATION
     Dosage: 30 G, (COMPOUNDED CAPSULE)
     Route: 065
  16. ESTRACE [Suspect]
     Active Substance: ESTRADIOL
     Dosage: 1.5 MG, QD
     Route: 048
  17. DITROPAN [Suspect]
     Active Substance: OXYBUTYNIN CHLORIDE
     Indication: PRODUCT USED FOR UNKNOWN INDICATION
     Dosage: 5 MG, TID
     Route: 048
  18. SIMETHICONE (DIMETHICONE) [Suspect]
     Active Substance: DIMETHICONE
     Indication: FLATULENCE
     Dosage: 250 MG, QID (EVERY 6 (SIX) HOURS AS NEEDED)
     Route: 048
  19. LIORESAL [Suspect]
     Active Substance: BACLOFEN
     Dosage: 199.8 UG, QD
     Route: 037
     Dates: end: 20150522
  20. CLARITIN [Suspect]
     Active Substance: LORATADINE
     Indication: PRODUCT USED FOR UNKNOWN INDICATION
     Dosage: 10 MG, QD
     Route: 048
  21. FERROUS SULFATE [Suspect]
     Active Substance: FERROUS SULFATE\FERROUS SULFATE, DRIED
     Indication: PRODUCT USED FOR UNKNOWN INDICATION
     Dosage: 325 MG, BID
     Route: 048
  22. RESTASIS [Suspect]
     Active Substance: CYCLOSPORINE
     Indication: PRODUCT USED FOR UNKNOWN INDICATION
     Dosage: 1 DRP, BID
     Route: 047
  23. LIORESAL [Suspect]
     Active Substance: BACLOFEN
     Indication: MUSCLE SPASTICITY
     Dosage: 618.6 UG, QD
     Route: 037
     Dates: start: 1994

REACTIONS (16)
  - Staphylococcal infection [Unknown]
  - Abdominal wound dehiscence [Unknown]
  - Hypertonia [Unknown]
  - Wound secretion [Unknown]
  - Pyrexia [Unknown]
  - White blood cell count increased [Unknown]
  - Hernia pain [Unknown]
  - Asthenia [Unknown]
  - Medical device site swelling [Recovering/Resolving]
  - Medical device site erythema [Recovering/Resolving]
  - Abdominal hernia [Unknown]
  - Pain [Unknown]
  - Wound infection [Unknown]
  - Medical device site pain [Unknown]
  - Implant site infection [Recovered/Resolved]
  - Pocket erosion [Unknown]

NARRATIVE: CASE EVENT DATE: 20150520
